FAERS Safety Report 8612664-7 (Version None)
Quarter: 2012Q3

REPORT INFORMATION
  Report Type: 
  Country: None (occurrence: None)
  Receive Date: 20120822
  Receipt Date: 20110922
  Transmission Date: 20120928
  Serious: No
  Sender: FDA-Public Use
  Company Number: US-ASTRAZENECA-2011SE57373

PATIENT
  Age: 55 Year
  Sex: Female

DRUGS (10)
  1. PROAIR HFA [Concomitant]
     Dosage: 90 MCG/ACTUATION, INHALER
  2. CELEXA [Concomitant]
  3. B COMPLEX WITH VITAMIN C [Concomitant]
  4. FLONASE [Concomitant]
     Dosage: 50 MCG PER ACTUATION
  5. RECLAST [Concomitant]
     Dosage: 5 MG/100 ML
  6. VITAMIN D [Concomitant]
  7. CALCIUM [Concomitant]
     Route: 048
  8. SYMBICORT [Suspect]
     Dosage: 80-4.5 MCG PER ACTUATION, HFAA INHALER, UNKNOWN
     Route: 055
  9. PRILOSEC [Suspect]
     Route: 048
  10. ZOCOR [Concomitant]

REACTIONS (9)
  - CHRONIC OBSTRUCTIVE PULMONARY DISEASE [None]
  - DYSPEPSIA [None]
  - POST POLIO SYNDROME [None]
  - HYPERCHOLESTEROLAEMIA [None]
  - RHEUMATOID ARTHRITIS [None]
  - EAR INFECTION [None]
  - VOMITING [None]
  - OSTEOPOROSIS [None]
  - ANXIETY [None]
